FAERS Safety Report 6734213-0 (Version None)
Quarter: 2010Q2

REPORT INFORMATION
  Report Type: 
  Country: None (occurrence: None)
  Receive Date: 20100520
  Receipt Date: 20100510
  Transmission Date: 20101027
  Serious: Yes (Hospitalization)
  Sender: FDA-Public Use
  Company Number: US-BAXTER-2010BH010637

PATIENT
  Age: 71 Year
  Sex: Female

DRUGS (2)
  1. DIANEAL [Suspect]
     Indication: PERITONEAL DIALYSIS
     Route: 033
  2. DIANEAL [Suspect]
     Indication: PERITONEAL DIALYSIS
     Route: 033

REACTIONS (7)
  - ABDOMINAL DISTENSION [None]
  - ASTHENIA [None]
  - CARDIAC DISORDER [None]
  - CONFUSIONAL STATE [None]
  - DISCOMFORT [None]
  - DIZZINESS [None]
  - HEART RATE DECREASED [None]
